FAERS Safety Report 13603380 (Version 1)
Quarter: 2017Q2

REPORT INFORMATION
  Report Type: Spontaneous
  Country: US (occurrence: US)
  Receive Date: 20170601
  Receipt Date: 20170601
  Transmission Date: 20170912
  Serious: No
  Sender: FDA-Public Use
  Company Number: US-OTSUKA-2016_016295

PATIENT
  Sex: Male

DRUGS (2)
  1. SAMSCA [Suspect]
     Dosage: UNK
     Route: 065
     Dates: start: 20160702
  2. SAMSCA [Suspect]
     Indication: HYPONATRAEMIA
     Dosage: UNK
     Route: 065

REACTIONS (1)
  - Inability to afford medication [Unknown]
